FAERS Safety Report 7649184-2 (Version None)
Quarter: 2011Q3

REPORT INFORMATION
  Report Type: 
  Country: None (occurrence: None)
  Receive Date: 20110726
  Receipt Date: 20110715
  Transmission Date: 20111222
  Serious: Yes (Other)
  Sender: FDA-Public Use
  Company Number: US-005421

PATIENT
  Sex: Male
  Weight: 45.2 kg

DRUGS (2)
  1. HUMAN GROWTH HORMONE, RECOMBINANT [Suspect]
     Indication: PRODUCT USED FOR UNKNOWN INDICATION
  2. TEV-TROPIN [Suspect]
     Indication: GROWTH RETARDATION
     Dosage: (0.04 MG/KG SUBCUTANEOUS)
     Route: 058
     Dates: start: 20090519, end: 20100701

REACTIONS (1)
  - BASAL CELL CARCINOMA [None]
